FAERS Safety Report 5808334-0 (Version None)
Quarter: 2008Q3

REPORT INFORMATION
  Report Type: 
  Country: None (occurrence: None)
  Receive Date: 20080714
  Receipt Date: 20080620
  Transmission Date: 20090109
  Serious: Yes (Life-Threatening, Other)
  Sender: FDA-Public Use
  Company Number: NL-BAYER-200821164GPV

PATIENT
  Age: 32 Year
  Sex: Female

DRUGS (8)
  1. ALEMTUZUMAB [Suspect]
     Indication: T-CELL LYMPHOMA
     Route: 065
     Dates: end: 20060301
  2. PREDNISONE [Suspect]
     Indication: T-CELL LYMPHOMA
     Route: 065
     Dates: end: 20060301
  3. CYCLOPHOSPHAMIDE [Suspect]
     Indication: T-CELL LYMPHOMA
     Route: 065
     Dates: end: 20060301
  4. DOXORUBICIN HCL [Suspect]
     Indication: T-CELL LYMPHOMA
     Route: 065
     Dates: end: 20060301
  5. VINCRISTINE [Suspect]
     Indication: T-CELL LYMPHOMA
     Route: 065
     Dates: end: 20060301
  6. COTRIM [Concomitant]
     Indication: INFECTION PROPHYLAXIS
     Route: 065
  7. VALACYCLOVIR HCL [Concomitant]
     Indication: ANTIVIRAL PROPHYLAXIS
     Route: 065
  8. FLUCONAZOLE [Concomitant]
     Indication: ANTIFUNGAL PROPHYLAXIS
     Route: 065

REACTIONS (7)
  - BRAIN NEOPLASM [None]
  - DIFFUSE LARGE B-CELL LYMPHOMA [None]
  - EPILEPSY [None]
  - EPSTEIN-BARR VIRUS INFECTION [None]
  - LYMPHOPENIA [None]
  - LYMPHOPROLIFERATIVE DISORDER [None]
  - T-CELL LYMPHOMA RECURRENT [None]
